FAERS Safety Report 5224160-8 (Version None)
Quarter: 2007Q1

REPORT INFORMATION
  Report Type: 
  Country: None (occurrence: None)
  Receive Date: 20070130
  Receipt Date: 20070124
  Transmission Date: 20070707
  Serious: Yes (Other)
  Sender: FDA-Public Use
  Company Number: FR-SANOFI-SYNTHELABO-A02200700027

PATIENT
  Sex: Male
  Weight: 85 kg

DRUGS (2)
  1. ELOXATIN [Suspect]
     Indication: COLORECTAL CANCER
     Route: 042
     Dates: start: 20061220, end: 20061220
  2. CALCIUM MAGNESIUM [Concomitant]
     Route: 042
     Dates: start: 20061220, end: 20061220

REACTIONS (3)
  - ERYTHEMA [None]
  - LARYNGOSPASM [None]
  - URTICARIA [None]
